FAERS Safety Report 14179674 (Version 2)
Quarter: 2019Q1

REPORT INFORMATION
  Report Type: Spontaneous
  Country: US (occurrence: US)
  Receive Date: 20171110
  Receipt Date: 20190309
  Transmission Date: 20190417
  Serious: Yes (Other)
  Sender: FDA-Public Use
  Company Number: PHEH2017US036415

PATIENT
  Sex: Female
  Weight: 93.4 kg

DRUGS (2)
  1. GLEEVEC [Suspect]
     Active Substance: IMATINIB MESYLATE
     Indication: CHRONIC MYELOID LEUKAEMIA
     Dosage: UNK
     Route: 065
  2. TASIGNA [Suspect]
     Active Substance: NILOTINIB
     Indication: CHRONIC MYELOID LEUKAEMIA
     Dosage: UNK
     Route: 065
     Dates: start: 20120612, end: 20160601

REACTIONS (7)
  - Sleep apnoea syndrome [Unknown]
  - Diabetic retinopathy [Unknown]
  - Hypertension [Unknown]
  - Cerebrovascular accident [Unknown]
  - Parkinson^s disease [Unknown]
  - Hyperlipidaemia [Unknown]
  - Diabetes mellitus [Unknown]

NARRATIVE: CASE EVENT DATE: 2015
